FAERS Safety Report 17224205 (Version 1)
Quarter: 2019Q4

REPORT INFORMATION
  Report Type: Spontaneous
  Country: US (occurrence: US)
  Receive Date: 20191209
  Receipt Date: 20191209
  Transmission Date: 20200122
  Serious: Yes (Death)
  Sender: FDA-Public Use
  Company Number: None

PATIENT
  Age: 64 Year
  Sex: Female

DRUGS (3)
  1. SYMDEKO [Suspect]
     Active Substance: IVACAFTOR\TEZACAFTOR
     Indication: CYSTIC FIBROSIS
     Dosage: ?          OTHER DOSE:100/150/150 MG;?
     Route: 048
     Dates: start: 20180618, end: 20191112
  2. LIDOCAINE PATCH 5% [Concomitant]
     Active Substance: LIDOCAINE
  3. TRIKAFTA [Suspect]
     Active Substance: ELEXACAFTOR\IVACAFTOR\TEZACAFTOR
     Dosage: ?          OTHER DOSE:100/50/75/150 MG;?
     Route: 048
     Dates: start: 20191112, end: 201911

REACTIONS (1)
  - Death [None]

NARRATIVE: CASE EVENT DATE: 201911
